FAERS Safety Report 12308747 (Version 1)
Quarter: 2016Q2

REPORT INFORMATION
  Report Type: Spontaneous
  Country: US (occurrence: US)
  Receive Date: 20160427
  Receipt Date: 20160427
  Transmission Date: 20160815
  Serious: No
  Sender: FDA-Public Use
  Company Number: US-GLENMARK PHARMACEUTICALS INC, USA.-2015GMK019900

PATIENT
  Age: 79 Year
  Sex: Male

DRUGS (4)
  1. INTERLEUKIN-2 [Concomitant]
     Active Substance: ALDESLEUKIN
     Dosage: 5-10 MILLION IU, UNK
     Route: 026
  2. RETINOID [Concomitant]
     Indication: METASTATIC MALIGNANT MELANOMA
     Dosage: UNK
     Route: 061
  3. INTERLEUKIN-2 [Concomitant]
     Active Substance: ALDESLEUKIN
     Indication: METASTATIC MALIGNANT MELANOMA
     Dosage: TESTING DOSE BETWEEN 3 AND 7 MILLION IU, UNK
     Route: 026
     Dates: start: 201105
  4. IMIQUIMOD. [Suspect]
     Active Substance: IMIQUIMOD
     Indication: METASTATIC MALIGNANT MELANOMA
     Dosage: UNK, DAILY
     Route: 061
     Dates: start: 201105

REACTIONS (2)
  - Therapeutic response unexpected [Unknown]
  - Off label use [Unknown]
